FAERS Safety Report 6338897-0 (Version None)
Quarter: 2009Q3

REPORT INFORMATION
  Report Type: 
  Country: None (occurrence: None)
  Receive Date: 20090903
  Receipt Date: 20090824
  Transmission Date: 20100115
  Serious: Yes (Other)
  Sender: FDA-Public Use
  Company Number: US-ABBOTT-09P-163-0593094-00

PATIENT
  Sex: Male
  Weight: 80.812 kg

DRUGS (8)
  1. NIASPAN [Suspect]
     Indication: LOW DENSITY LIPOPROTEIN INCREASED
     Dates: start: 20090625, end: 20090704
  2. LIPITOR [Concomitant]
     Indication: BLOOD CHOLESTEROL INCREASED
  3. LISINOPRIL [Concomitant]
     Indication: CARDIAC OPERATION
  4. AMLODIPINE [Concomitant]
     Indication: HYPERTENSION
  5. PLAVIX [Concomitant]
     Indication: CORONARY ARTERIAL STENT INSERTION
  6. HYDROCHLORATHIAZIDE [Concomitant]
     Indication: HYPERTENSION
  7. ASPIRIN [Concomitant]
     Indication: CARDIAC DISORDER
  8. GLUCOSAMINE [Concomitant]
     Indication: ARTHROPATHY

REACTIONS (2)
  - ARTERIAL RUPTURE [None]
  - EPISTAXIS [None]
